FAERS Safety Report 18942028 (Version 1)
Quarter: 2021Q1

REPORT INFORMATION
  Report Type: Report from Study
  Country: US (occurrence: US)
  Receive Date: 20210225
  Receipt Date: 20210225
  Transmission Date: 20210420
  Serious: No
  Sender: FDA-Public Use
  Company Number: US-INCYTE CORPORATION-2021IN000342

PATIENT

DRUGS (3)
  1. JAKAFI [Suspect]
     Active Substance: RUXOLITINIB
     Indication: MYELOFIBROSIS
     Dosage: 7.5 MG (15MG TABLETS IN HALF), BID FOR 6 DAYS
     Route: 048
     Dates: start: 202011
  2. JAKAFI [Suspect]
     Active Substance: RUXOLITINIB
     Dosage: 20 MG (4 TABLETS X 5 MG), QD
     Route: 048
     Dates: start: 20191021
  3. JAKAFI [Suspect]
     Active Substance: RUXOLITINIB
     Dosage: 15 MILLIGRAM, BID
     Route: 048
     Dates: start: 2020

REACTIONS (4)
  - Feeling abnormal [Unknown]
  - Red blood cell count decreased [Unknown]
  - Wrong technique in product usage process [Unknown]
  - Arthropathy [Unknown]
